FAERS Safety Report 4612415-7 (Version None)
Quarter: 2005Q1

REPORT INFORMATION
  Report Type: 
  Country: None (occurrence: None)
  Receive Date: 20050316
  Receipt Date: 20050301
  Transmission Date: 20050727
  Serious: Yes (Other)
  Sender: FDA-Public Use
  Company Number: USA041081446

PATIENT
  Age: 15 Year
  Sex: Male
  Weight: 57 kg

DRUGS (1)
  1. STRATTERA [Suspect]
     Indication: ATTENTION DEFICIT/HYPERACTIVITY DISORDER
     Dosage: 80 MG DAY

REACTIONS (4)
  - BLINDNESS TRANSIENT [None]
  - DIZZINESS [None]
  - HEADACHE [None]
  - SYNCOPE [None]
